FAERS Safety Report 18575100 (Version 1)
Quarter: 2020Q4

REPORT INFORMATION
  Report Type: Spontaneous
  Country: IN (occurrence: IN)
  Receive Date: 20201203
  Receipt Date: 20201203
  Transmission Date: 20210114
  Serious: Yes (Other)
  Sender: FDA-Public Use
  Company Number: IN-PFIZER INC-2020470164

PATIENT
  Age: 71 Year
  Sex: Female

DRUGS (1)
  1. PALBACE [Suspect]
     Active Substance: PALBOCICLIB
     Indication: BREAST CANCER METASTATIC
     Dosage: 125 MG, 1X/DAY
     Route: 048
     Dates: start: 20200512

REACTIONS (6)
  - Pain [Unknown]
  - Gait inability [Unknown]
  - Toothache [Unknown]
  - Headache [Unknown]
  - Vein disorder [Unknown]
  - Seizure [Unknown]

NARRATIVE: CASE EVENT DATE: 2020
